FAERS Safety Report 4873845-1 (Version None)
Quarter: 2006Q1

REPORT INFORMATION
  Report Type: 
  Country: None (occurrence: None)
  Receive Date: 20060103
  Receipt Date: 20060103
  Transmission Date: 20060701
  Serious: Yes (Hospitalization)
  Sender: FDA-Public Use
  Company Number: None

PATIENT
  Sex: Female
  Weight: 77.1115 kg

DRUGS (2)
  1. TOPAMAX [Suspect]
     Indication: MIGRAINE
     Dosage: 100 MG 2 X/DAY PO
     Route: 048
     Dates: start: 20031201, end: 20051117
  2. TOPAMAX [Suspect]
     Indication: VERTIGO
     Dosage: 100 MG 2 X/DAY PO
     Route: 048
     Dates: start: 20031201, end: 20051117

REACTIONS (3)
  - ASTHMA [None]
  - PNEUMONIA [None]
  - TREMOR [None]
